FAERS Safety Report 17529597 (Version 2)
Quarter: 2020Q2

REPORT INFORMATION
  Report Type: Spontaneous
  Country: US (occurrence: US)
  Receive Date: 20200312
  Receipt Date: 20200505
  Transmission Date: 20200713
  Serious: No
  Sender: FDA-Public Use
  Company Number: US-TEVA-2020-US-1185591

PATIENT
  Sex: Female
  Weight: 92.7 kg

DRUGS (2)
  1. AJOVY [Suspect]
     Active Substance: FREMANEZUMAB-VFRM
     Indication: MIGRAINE
     Dosage: INITIAL THERAPY START; MONTHLY
     Route: 065
     Dates: start: 20191204
  2. VITAMINS [Concomitant]
     Active Substance: VITAMINS

REACTIONS (1)
  - White blood cell count decreased [Not Recovered/Not Resolved]
